FAERS Safety Report 7318897-4 (Version None)
Quarter: 2011Q1

REPORT INFORMATION
  Report Type: 
  Country: None (occurrence: None)
  Receive Date: 20110228
  Receipt Date: 20110216
  Transmission Date: 20110831
  Serious: Yes (Other)
  Sender: FDA-Public Use
  Company Number: US-NOVOPROD-321800

PATIENT
  Sex: Female
  Weight: 78.458 kg

DRUGS (2)
  1. NOVOLOG MIX 70/30 [Suspect]
     Indication: TYPE 2 DIABETES MELLITUS
     Dosage: 30 U AM + 28 U PM
     Route: 058
  2. FUROSEMIDE [Concomitant]
     Indication: OEDEMA
     Dosage: 40 MG, QD
     Route: 048

REACTIONS (3)
  - MULTIPLE ALLERGIES [None]
  - ASTHMA [None]
  - BLINDNESS [None]
